FAERS Safety Report 23149458 (Version 1)
Quarter: 2023Q4

REPORT INFORMATION
  Report Type: Spontaneous
  Country: CA (occurrence: CA)
  Receive Date: 20231106
  Receipt Date: 20231106
  Transmission Date: 20240110
  Serious: Yes (Life-Threatening)
  Sender: FDA-Public Use
  Company Number: CA-MYLANLABS-2023M1112695

PATIENT
  Age: 45 Year
  Sex: Female

DRUGS (1)
  1. CAMPRAL [Suspect]
     Active Substance: ACAMPROSATE CALCIUM
     Indication: Product used for unknown indication
     Dosage: UNK
     Route: 065

REACTIONS (1)
  - Mesenteric haemorrhage [Unknown]
